FAERS Safety Report 12839802 (Version 1)
Quarter: 2016Q4

REPORT INFORMATION
  Report Type: Spontaneous
  Country: US (occurrence: US)
  Receive Date: 20161011
  Receipt Date: 20161011
  Transmission Date: 20170207
  Serious: No
  Sender: FDA-Public Use
  Company Number: None

PATIENT
  Age: 60 Year
  Sex: Female
  Weight: 58.5 kg

DRUGS (4)
  1. FLUTICASONE PROPRIONATE [Suspect]
     Active Substance: FLUTICASONE PROPIONATE
     Indication: UPPER-AIRWAY COUGH SYNDROME
     Dosage: ?          QUANTITY:2 SPRAY(S);?
     Route: 055
     Dates: start: 20160928
  2. ALEVE [Concomitant]
     Active Substance: NAPROXEN SODIUM
  3. SUMATRIPTAN. [Concomitant]
     Active Substance: SUMATRIPTAN
  4. IBUPROFEN. [Concomitant]
     Active Substance: IBUPROFEN

REACTIONS (1)
  - Anosmia [None]

NARRATIVE: CASE EVENT DATE: 20160928
